FAERS Safety Report 17962542 (Version 1)
Quarter: 2020Q2

REPORT INFORMATION
  Report Type: Spontaneous
  Country: US (occurrence: US)
  Receive Date: 20200629
  Receipt Date: 20200629
  Transmission Date: 20200714
  Serious: Yes (Hospitalization)
  Sender: FDA-Public Use
  Company Number: None

PATIENT
  Age: 3 Year
  Sex: Female

DRUGS (5)
  1. FLUCONAZOLE. [Concomitant]
     Active Substance: FLUCONAZOLE
  2. LEUKINE [Suspect]
     Active Substance: SARGRAMOSTIM
     Indication: ADRENAL GLAND CANCER
     Dosage: ?          OTHER FREQUENCY:Q14D;?
     Route: 058
     Dates: start: 20200611
  3. NEUPOGEN [Concomitant]
     Active Substance: FILGRASTIM
  4. AMNESTEEM [Concomitant]
     Active Substance: ISOTRETINOIN
  5. SULFATRIM PD [Concomitant]

REACTIONS (1)
  - Hospitalisation [None]

NARRATIVE: CASE EVENT DATE: 20200615
